FAERS Safety Report 4785529-9 (Version None)
Quarter: 2005Q3

REPORT INFORMATION
  Report Type: 
  Country: None (occurrence: None)
  Receive Date: 20050929
  Receipt Date: 20050919
  Transmission Date: 20060218
  Serious: No
  Sender: FDA-Public Use
  Company Number: 2005121894

PATIENT
  Sex: Female
  Weight: 119.296 kg

DRUGS (6)
  1. GLUCOTROL XL [Suspect]
     Indication: DIABETES MELLITUS
     Dosage: 20 MG (10 MG, 2 IN 1 D), ORAL
     Route: 048
  2. ACTOS [Concomitant]
  3. LASIX [Concomitant]
  4. AVAPRO [Concomitant]
  5. CARDENE [Concomitant]
  6. SODIUM BICARBONATE IN PLASTIC CONTAINER [Concomitant]

REACTIONS (9)
  - CONDITION AGGRAVATED [None]
  - DIABETES MELLITUS [None]
  - EMOTIONAL DISORDER [None]
  - HYPOGLYCAEMIA [None]
  - IATROGENIC INJURY [None]
  - PHARMACEUTICAL PRODUCT COMPLAINT [None]
  - POST PROCEDURAL COMPLICATION [None]
  - RENAL INJURY [None]
  - STRESS [None]
